FAERS Safety Report 14914608 (Version 1)
Quarter: 2018Q2

REPORT INFORMATION
  Report Type: Spontaneous
  Country: DE (occurrence: DE)
  Receive Date: 20180518
  Receipt Date: 20180518
  Transmission Date: 20180711
  Serious: Yes (Hospitalization)
  Sender: FDA-Public Use
  Company Number: DE-ASTRAZENECA-2018SE62719

PATIENT
  Age: 61 Year
  Sex: Female
  Weight: 113 kg

DRUGS (14)
  1. VIANI [Concomitant]
     Active Substance: FLUTICASONE PROPIONATE\SALMETEROL XINAFOATE
     Dosage: 25|125 ???G, 1-0-1-0, METERED DOSE INHALER
     Route: 055
  2. CETEBE [Concomitant]
     Dosage: 500 MG, 1-0-0-0, TABLETTEN
     Route: 048
  3. PROMETHAZINE [Suspect]
     Active Substance: PROMETHAZINE\PROMETHAZINE HYDROCHLORIDE
     Dosage: 25 MG, 1-0.5-0.5-0, TABLETTEN
     Route: 048
  4. VITAMIN B [Concomitant]
     Active Substance: VITAMIN B
     Dosage: 4.2|4.8|6|0.003|0.4|36|18 MG, 0-1-0-0, TABLETTEN
     Route: 048
  5. LITHIUM. [Suspect]
     Active Substance: LITHIUM
     Dosage: 12.2 MMOL, 1-1-1-0, TABLETTEN
     Route: 048
  6. LEVOTHYROXINE. [Concomitant]
     Active Substance: LEVOTHYROXINE
     Dosage: 75 ???G, 1-0-0-0, TABLETTEN
     Route: 048
  7. PHYTONOCTU [Concomitant]
     Dosage: 60|70|70 MG, 0-0-0-3, TABLETTEN
     Route: 048
  8. HALOPERIDOL. [Suspect]
     Active Substance: HALOPERIDOL
     Dosage: 20 MG, 0.5-0-0.5-0, TABLETTEN
     Route: 048
  9. RAMIPRIL. [Concomitant]
     Active Substance: RAMIPRIL
     Dosage: 5 MG, 0-0-0.5-0, TABLETTEN
     Route: 048
  10. QUETIAPINE. [Suspect]
     Active Substance: QUETIAPINE
     Dosage: 100 MG, 0-0-1-0, TABLETTEN
     Route: 048
  11. CODEINE [Concomitant]
     Active Substance: CODEINE
  12. FLUVOXAMINE [Suspect]
     Active Substance: FLUVOXAMINE
     Dosage: 100 MG, 0-0-0-0.5, TABLETTEN
     Route: 048
  13. PROPRANOLOL [Concomitant]
     Active Substance: PROPRANOLOL HYDROCHLORIDE
     Dosage: 40 MG, 0.5-0-0-0, TABLETTEN
     Route: 048
  14. BIPERIDEN [Concomitant]
     Active Substance: BIPERIDEN
     Dosage: 4 MG, 1-0-0-0

REACTIONS (8)
  - Hemiparesis [Unknown]
  - Renal impairment [Unknown]
  - Medication error [Unknown]
  - General physical health deterioration [Unknown]
  - Schizophrenia [Unknown]
  - Diarrhoea [Unknown]
  - Dysarthria [Unknown]
  - Toxicity to various agents [Unknown]
